FAERS Safety Report 18107650 (Version 1)
Quarter: 2020Q3

REPORT INFORMATION
  Report Type: Spontaneous
  Country: HU (occurrence: HU)
  Receive Date: 20200803
  Receipt Date: 20200803
  Transmission Date: 20201103
  Serious: Yes (Other)
  Sender: FDA-Public Use
  Company Number: HU-PFIZER INC-2020286931

PATIENT
  Sex: Female

DRUGS (6)
  1. ZOLEDRONIC ACID [Suspect]
     Active Substance: ZOLEDRONIC ACID
     Indication: BREAST CANCER METASTATIC
     Dosage: UNK (EVERY 3 MONTHS)
     Route: 065
     Dates: start: 20190823
  2. DOXORUBICIN HCL [Suspect]
     Active Substance: DOXORUBICIN HYDROCHLORIDE
     Indication: BREAST CANCER METASTATIC
     Dosage: 4 OT, CYCLIC (4X)
     Route: 065
  3. KISQALI [Suspect]
     Active Substance: RIBOCICLIB
     Indication: BREAST CANCER METASTATIC
     Dosage: 600 MG, CYCLIC  (FOR 21 DAYS, THEN 7 DAYS PAUSE)
     Route: 065
     Dates: start: 20190823
  4. FASLODEX [Concomitant]
     Active Substance: FULVESTRANT
     Dosage: UNK (EVERY 4 WEEKS)
     Route: 065
  5. CYCLOPHOSPHAMIDE. [Suspect]
     Active Substance: CYCLOPHOSPHAMIDE
     Indication: BREAST CANCER METASTATIC
     Dosage: 4 OT, CYCLIC (4X)
     Route: 065
  6. FASLODEX [Concomitant]
     Active Substance: FULVESTRANT
     Dosage: 250 MG (2X EVERY TWO WEEKS)
     Route: 065
     Dates: start: 20190823

REACTIONS (11)
  - Neutropenia [Unknown]
  - Trigger finger [Unknown]
  - Lung disorder [Unknown]
  - Breast disorder [Unknown]
  - Breast calcifications [Unknown]
  - Pulmonary mass [Unknown]
  - Hypokinesia [Unknown]
  - Neuropathy peripheral [Unknown]
  - Bone lesion [Unknown]
  - Invasive breast carcinoma [Unknown]
  - Neoplasm progression [Unknown]

NARRATIVE: CASE EVENT DATE: 20180524
